FAERS Safety Report 4937776-0 (Version None)
Quarter: 2006Q1

REPORT INFORMATION
  Report Type: 
  Country: None (occurrence: None)
  Receive Date: 20060309
  Receipt Date: 20050913
  Transmission Date: 20060701
  Serious: Yes (Hospitalization)
  Sender: FDA-Public Use
  Company Number: US-MERCK-0509USA01723

PATIENT
  Age: 69 Year
  Sex: Female
  Weight: 81 kg

DRUGS (3)
  1. VIOXX [Suspect]
     Indication: OSTEOARTHRITIS
     Route: 048
     Dates: start: 20010601, end: 20040930
  2. SYNTHROID [Concomitant]
     Indication: HYPOTHYROIDISM
     Route: 065
  3. OGEN [Concomitant]
     Route: 065

REACTIONS (36)
  - ABDOMINAL PAIN [None]
  - ANAEMIA [None]
  - ARTERIAL STENOSIS [None]
  - BURSITIS [None]
  - CARDIAC DISORDER [None]
  - CARDIAC FAILURE CONGESTIVE [None]
  - CATARACT [None]
  - CEREBROVASCULAR ACCIDENT [None]
  - CHEST PAIN [None]
  - CLUMSINESS [None]
  - DEPRESSION [None]
  - DIZZINESS [None]
  - DYSPNOEA [None]
  - DYSPNOEA EXERTIONAL [None]
  - DYSPNOEA PAROXYSMAL NOCTURNAL [None]
  - FATIGUE [None]
  - GAIT DISTURBANCE [None]
  - GLAUCOMA [None]
  - HYPERLIPIDAEMIA [None]
  - HYPERTENSION [None]
  - IRIDOCYCLITIS [None]
  - JOINT SWELLING [None]
  - LIGAMENT INJURY [None]
  - LUNG NEOPLASM [None]
  - MACULAR DEGENERATION [None]
  - NAUSEA [None]
  - PORPHYRIA ACUTE [None]
  - RADICULAR PAIN [None]
  - RASH [None]
  - RED BLOOD CELL SEDIMENTATION RATE INCREASED [None]
  - RESTLESS LEGS SYNDROME [None]
  - SCIATICA [None]
  - SYNOVITIS [None]
  - TRANSIENT ISCHAEMIC ATTACK [None]
  - UVEITIS [None]
  - VISUAL DISTURBANCE [None]
